FAERS Safety Report 7486419-3 (Version None)
Quarter: 2011Q2

REPORT INFORMATION
  Report Type: 
  Country: None (occurrence: None)
  Receive Date: 20110516
  Receipt Date: 20110516
  Transmission Date: 20111010
  Serious: Yes (Hospitalization)
  Sender: FDA-Public Use
  Company Number: None

PATIENT
  Age: 50 Year
  Sex: Female
  Weight: 94.3482 kg

DRUGS (1)
  1. CLARITHROMYCIN [Suspect]
     Indication: BRONCHITIS CHRONIC
     Dosage: 500MG 2X PER DAY PO
     Route: 048
     Dates: start: 20110502, end: 20110506

REACTIONS (6)
  - DISORIENTATION [None]
  - DIZZINESS [None]
  - CONFUSIONAL STATE [None]
  - AMNESIA [None]
  - VERTIGO [None]
  - DEPERSONALISATION [None]
